FAERS Safety Report 8857538 (Version 1)
Quarter: 2012Q4

REPORT INFORMATION
  Report Type: 
  Country: FR (occurrence: FR)
  Receive Date: 20121024
  Receipt Date: 20121024
  Transmission Date: 20130627
  Serious: Yes (Death)
  Sender: FDA-Public Use
  Company Number: FR-GLAXOSMITHKLINE-B0838162A

PATIENT
  Age: 45 Year
  Sex: Male

DRUGS (7)
  1. REVOLADE [Suspect]
     Indication: AUTOIMMUNE THROMBOCYTOPENIA
     Route: 048
     Dates: start: 20120801
  2. TERCIAN [Concomitant]
     Dosage: 125MG per day
  3. THERALENE [Concomitant]
     Dosage: 40MG per day
  4. SEROPLEX [Concomitant]
     Dosage: 10MG per day
  5. SUBUTEX [Concomitant]
     Dosage: 8MG per day
  6. AOTAL [Concomitant]
  7. INEXIUM [Concomitant]

REACTIONS (4)
  - Lung disorder [Fatal]
  - Subileus [Fatal]
  - Cardio-respiratory arrest [Recovered/Resolved]
  - Off label use [Unknown]
